FAERS Safety Report 4726866-3 (Version None)
Quarter: 2005Q3

REPORT INFORMATION
  Report Type: 
  Country: None (occurrence: None)
  Receive Date: 20050726
  Receipt Date: 20050614
  Transmission Date: 20060218
  Serious: Yes (Hospitalization)
  Sender: FDA-Public Use
  Company Number: 11613

PATIENT
  Age: 17 Year
  Sex: Male

DRUGS (4)
  1. METHOTREXATE [Suspect]
     Indication: ACUTE LYMPHOCYTIC LEUKAEMIA
     Dosage: SEE IMAGE
     Dates: start: 20041117, end: 20041118
  2. METHOTREXATE [Suspect]
     Indication: ACUTE LYMPHOCYTIC LEUKAEMIA
     Dosage: SEE IMAGE
     Dates: start: 20041207, end: 20041208
  3. METHOTREXATE [Suspect]
     Indication: ACUTE LYMPHOCYTIC LEUKAEMIA
     Dosage: SEE IMAGE
     Dates: start: 20041117
  4. METHOTREXATE [Suspect]

REACTIONS (6)
  - CRANIAL NEUROPATHY [None]
  - DYSARTHRIA [None]
  - FACIAL PARESIS [None]
  - HEMIPARESIS [None]
  - NEUROTOXICITY [None]
  - NUCLEAR MAGNETIC RESONANCE IMAGING ABNORMAL [None]
